FAERS Safety Report 6189731-3 (Version None)
Quarter: 2009Q2

REPORT INFORMATION
  Report Type: 
  Country: None (occurrence: None)
  Receive Date: 20090514
  Receipt Date: 20090508
  Transmission Date: 20091009
  Serious: Yes (Hospitalization)
  Sender: FDA-Public Use
  Company Number: US-MEDIMMUNE-MEDI-0008372

PATIENT
  Age: 9 Month
  Sex: Female

DRUGS (3)
  1. SYNAGIS [Suspect]
     Dates: start: 20081114, end: 20090119
  2. SYNAGIS [Suspect]
     Dates: start: 20081114
  3. SYNAGIS [Suspect]
     Dates: start: 20081215

REACTIONS (1)
  - PNEUMONIA [None]
